FAERS Safety Report 6056698-8 (Version None)
Quarter: 2009Q1

REPORT INFORMATION
  Report Type: 
  Country: None (occurrence: None)
  Receive Date: 20090129
  Receipt Date: 20080221
  Transmission Date: 20090719
  Serious: No
  Sender: FDA-Public Use
  Company Number: A0711012A

PATIENT
  Sex: Male

DRUGS (3)
  1. EPIVIR [Suspect]
     Indication: HIV INFECTION
     Dosage: 1TAB PER DAY
     Route: 048
  2. SUSTIVA [Concomitant]
  3. UNKNOWN MEDICATION [Concomitant]

REACTIONS (1)
  - DRUG INEFFECTIVE [None]
